FAERS Safety Report 12156583 (Version 1)
Quarter: 2016Q1

REPORT INFORMATION
  Report Type: Spontaneous
  Country: NG (occurrence: NG)
  Receive Date: 20160307
  Receipt Date: 20160307
  Transmission Date: 20160526
  Serious: Yes (Other)
  Sender: FDA-Public Use
  Company Number: NG-ROCHE-1722444

PATIENT
  Age: 33 Year
  Sex: Female
  Weight: 48 kg

DRUGS (2)
  1. CAPECITABINE. [Concomitant]
     Active Substance: CAPECITABINE
     Indication: BREAST CANCER
     Dosage: 1250MG/M2 IN TWO DIVIDED DOSES
     Route: 048
  2. AVASTIN [Suspect]
     Active Substance: BEVACIZUMAB
     Indication: BREAST CANCER RECURRENT
     Dosage: 15MG/KG EVERY 21 DAYS
     Route: 042

REACTIONS (3)
  - Metastases to lymph nodes [Recovered/Resolved]
  - No therapeutic response [Unknown]
  - Pleural effusion [Recovered/Resolved]
